FAERS Safety Report 25258373 (Version 1)
Quarter: 2025Q2

REPORT INFORMATION
  Report Type: Spontaneous
  Country: US (occurrence: US)
  Receive Date: 20250501
  Receipt Date: 20250501
  Transmission Date: 20250716
  Serious: No
  Sender: TEVA
  Company Number: US-TEVA-VS-3324322

PATIENT
  Age: 76 Year
  Sex: Male

DRUGS (1)
  1. BUPRENORPHINE [Suspect]
     Active Substance: BUPRENORPHINE
     Indication: Product used for unknown indication
     Dosage: STRENGTH: 10 MCG / HR, 1 PATCH EVERY 7 DAYS
     Route: 062

REACTIONS (3)
  - Application site erythema [Unknown]
  - Wrong technique in product usage process [Unknown]
  - Application site pruritus [Unknown]
